FAERS Safety Report 13050004 (Version 1)
Quarter: 2016Q4

REPORT INFORMATION
  Report Type: Spontaneous
  Country: FR (occurrence: FR)
  Receive Date: 20161221
  Receipt Date: 20161221
  Transmission Date: 20170207
  Serious: Yes (Other)
  Sender: FDA-Public Use
  Company Number: PHHY2016FR171682

PATIENT

DRUGS (1)
  1. GLIVEC [Suspect]
     Active Substance: IMATINIB MESYLATE
     Indication: FOETAL EXPOSURE DURING PREGNANCY
     Dosage: FETAL DRUG EXPOSURE VIA FATHER, 400 MG/DAY FOR 40 MONTHS
     Route: 064

REACTIONS (2)
  - Exposure via father [Unknown]
  - Double outlet right ventricle [Unknown]
